FAERS Safety Report 8861358 (Version 5)
Quarter: 2013Q3

REPORT INFORMATION
  Report Type: Report from Study
  Country: JP (occurrence: JP)
  Receive Date: 20121026
  Receipt Date: 20130816
  Transmission Date: 20140515
  Serious: Yes (Other)
  Sender: FDA-Public Use
  Company Number: JP-009507513-2012SP031036

PATIENT
  Age: 50 Year
  Sex: Male
  Weight: 87 kg

DRUGS (12)
  1. PEGINTRON [Suspect]
     Indication: CHRONIC HEPATITIS C
     Dosage: 1.5 MICROGRAM PER KILOGRAM, QW
     Route: 058
     Dates: start: 20120403, end: 20120501
  2. PEGINTRON [Suspect]
     Dosage: 60 MICROGRAM, QW
     Route: 058
     Dates: start: 20120508, end: 20120522
  3. PEGINTRON [Suspect]
     Dosage: 100 MICROGRAM PER KILOGRAM, QW
     Route: 058
     Dates: start: 20120529, end: 20120918
  4. REBETOL [Suspect]
     Indication: CHRONIC HEPATITIS C
     Dosage: 1000 MG, QD
     Route: 048
     Dates: start: 20120403, end: 20120410
  5. REBETOL [Suspect]
     Dosage: 800 MG, QD
     Route: 048
     Dates: start: 20120501, end: 20120806
  6. REBETOL [Suspect]
     Dosage: 600 MG, QD
     Route: 048
     Dates: start: 20120807, end: 20121001
  7. TELAVIC [Suspect]
     Indication: CHRONIC HEPATITIS C
     Dosage: 2250 MG, QD
     Route: 048
     Dates: start: 20120403, end: 20120410
  8. TELAVIC [Suspect]
     Dosage: 1500 MG, QD
     Route: 048
     Dates: start: 20120501, end: 20120716
  9. TELAVIC [Suspect]
     Dosage: 1550 MG, QD
     Route: 048
     Dates: start: 20120501
  10. PREDNISOLONE [Concomitant]
     Indication: RASH
     Dosage: 30 MG, QD, FORMULATION-POR
     Route: 048
     Dates: start: 20120410, end: 20120604
  11. GLYCYRON [Concomitant]
     Indication: RASH
     Dosage: 6 DF, QD, FORMULATION-TABLET
     Route: 048
     Dates: start: 20120410
  12. ANTEBATE [Concomitant]
     Indication: RASH
     Dosage: UNK, FORMULATION-OINTMENT
     Route: 061
     Dates: start: 20120410

REACTIONS (1)
  - Drug eruption [Recovered/Resolved]
